FAERS Safety Report 8274794-1 (Version None)
Quarter: 2012Q2

REPORT INFORMATION
  Report Type: 
  Country: None (occurrence: None)
  Receive Date: 20120411
  Receipt Date: 20120402
  Transmission Date: 20120825
  Serious: Yes (Other)
  Sender: FDA-Public Use
  Company Number: US-ASTRAZENECA-2012SE21820

PATIENT
  Age: 51 Year
  Sex: Female
  Weight: 113.4 kg

DRUGS (9)
  1. TORSEMIDE [Concomitant]
     Indication: BLOOD PRESSURE
  2. PRILOSEC [Concomitant]
  3. NOVOLIN 70/30 [Concomitant]
     Indication: DIABETES MELLITUS
     Dosage: LONG AND SHORT ACTING 70, 30 WHICH IS 90 UNITS 3 TIMES A DAY
  4. ATENOLOL (RANBAXY) [Concomitant]
  5. SYMLIN [Concomitant]
     Indication: DIABETES MELLITUS
     Dosage: 120
  6. LIPITOR [Concomitant]
  7. FASLODEX [Suspect]
     Indication: BREAST CANCER METASTATIC
     Dosage: RECEIVED 2 INJECTIONS OF FASLODEX
     Route: 030
  8. COZAAR [Concomitant]
  9. PROMETHAZINE [Concomitant]

REACTIONS (3)
  - MUSCLE SPASMS [None]
  - VAGINAL HAEMORRHAGE [None]
  - THROMBOSIS [None]
